FAERS Safety Report 4386790-5 (Version None)
Quarter: 2004Q2

REPORT INFORMATION
  Report Type: 
  Country: None (occurrence: None)
  Receive Date: 20040607
  Receipt Date: 20030820
  Transmission Date: 20050107
  Serious: Yes (Other)
  Sender: FDA-Public Use
  Company Number: 303246

PATIENT
  Sex: Female
  Weight: 3.4 kg

DRUGS (3)
  1. ACCUTANE [Suspect]
     Indication: ACNE
     Dosage: 40 MG DAILY
     Dates: start: 20010615, end: 20011127
  2. WELLBUTRIN [Concomitant]
  3. ORTHO TRI-CYCLEN [Concomitant]

REACTIONS (4)
  - ADVERSE EVENT [None]
  - DRUG EXPOSURE DURING PREGNANCY [None]
  - NO ADVERSE DRUG EFFECT [None]
  - NORMAL NEWBORN [None]
